FAERS Safety Report 20913618 (Version 1)
Quarter: 2022Q2

REPORT INFORMATION
  Report Type: Spontaneous
  Country: US (occurrence: US)
  Receive Date: 20220604
  Receipt Date: 20220604
  Transmission Date: 20220721
  Serious: Yes (Other)
  Sender: FDA-Public Use
  Company Number: US-AMGEN-USASP2022093495

PATIENT
  Age: 47 Year
  Sex: Female
  Weight: 81.9 kg

DRUGS (1)
  1. MVASI [Suspect]
     Active Substance: BEVACIZUMAB-AWWB
     Indication: Brain neoplasm
     Dosage: 600 MILLIGRAM
     Route: 065

REACTIONS (1)
  - Brain neoplasm malignant [Unknown]
